FAERS Safety Report 5592575-4 (Version None)
Quarter: 2007Q4

REPORT INFORMATION
  Report Type: 
  Country: None (occurrence: None)
  Receive Date: 20071217
  Receipt Date: 20070913
  Transmission Date: 20080405
  Serious: Yes (Hospitalization)
  Sender: FDA-Public Use
  Company Number: 13907878

PATIENT
  Sex: Female
  Weight: 90.7 kg

DRUGS (6)
  1. EMSAM [Suspect]
     Indication: DEPRESSION
     Dosage: 6 MILLIGRAM,1/1 DAY TD
     Route: 062
  2. ZOCOR [Concomitant]
  3. ATIVAN [Concomitant]
  4. NEXIUM [Concomitant]
  5. LOPRESSOR [Concomitant]
  6. DITROPAN [Concomitant]

REACTIONS (5)
  - ANOREXIA [None]
  - DEPRESSION [None]
  - DRUG INEFFECTIVE [None]
  - DRY MOUTH [None]
  - NAUSEA [None]
